FAERS Safety Report 12394124 (Version 1)
Quarter: 2016Q2

REPORT INFORMATION
  Report Type: Spontaneous
  Country: US (occurrence: US)
  Receive Date: 20160523
  Receipt Date: 20160523
  Transmission Date: 20160815
  Serious: Yes (Other)
  Sender: FDA-Public Use
  Company Number: US-PFIZER INC-2016269211

PATIENT
  Age: 8 Year
  Sex: Male
  Weight: 27.22 kg

DRUGS (2)
  1. QUILLIVANT XR [Suspect]
     Active Substance: METHYLPHENIDATE HYDROCHLORIDE
     Indication: ATTENTION DEFICIT/HYPERACTIVITY DISORDER
     Dosage: 4 ML, 1X/DAY (STRENGTH: 25 MG/5 ML SUSPENSION)
     Route: 048
     Dates: start: 20160506, end: 201605
  2. LEVALBUTEROL /01419301/ [Concomitant]
     Indication: ASTHMA
     Dosage: 0.63 MG, UNK

REACTIONS (1)
  - Seizure [Recovered/Resolved]

NARRATIVE: CASE EVENT DATE: 20160516
